FAERS Safety Report 6978900-8 (Version None)
Quarter: 2010Q3

REPORT INFORMATION
  Report Type: 
  Country: None (occurrence: None)
  Receive Date: 20100913
  Receipt Date: 20100902
  Transmission Date: 20110219
  Serious: Yes (Hospitalization)
  Sender: FDA-Public Use
  Company Number: US-JNJFOC-20100802443

PATIENT
  Sex: Male
  Weight: 51.6 kg

DRUGS (12)
  1. REMICADE [Suspect]
     Indication: CROHN'S DISEASE
     Route: 042
  2. HUMIRA [Concomitant]
     Indication: INFLAMMATORY BOWEL DISEASE
     Route: 058
  3. HUMIRA [Concomitant]
     Route: 058
  4. HUMIRA [Concomitant]
     Route: 058
  5. HYDROCORTISONE [Concomitant]
     Dosage: AS NECESSARY
     Route: 061
  6. METHOTREXATE [Concomitant]
     Route: 058
  7. ANTIBIOTICS [Concomitant]
     Indication: INFLAMMATORY BOWEL DISEASE
  8. VITAMIN D [Concomitant]
     Route: 048
  9. FERROUS SULFATE [Concomitant]
     Indication: ANAEMIA
     Route: 048
  10. FOLIC ACID [Concomitant]
     Route: 048
  11. MIRALAX [Concomitant]
  12. CIPRO [Concomitant]
     Route: 048

REACTIONS (3)
  - CROHN'S DISEASE [None]
  - ESCHERICHIA URINARY TRACT INFECTION [None]
  - FISTULA [None]
